FAERS Safety Report 4537558-8 (Version None)
Quarter: 2004Q4

REPORT INFORMATION
  Report Type: 
  Country: None (occurrence: None)
  Receive Date: 20041216
  Receipt Date: 20040722
  Transmission Date: 20050328
  Serious: Yes (Life-Threatening)
  Sender: FDA-Public Use
  Company Number: HQWYE393623JUL04

PATIENT
  Age: 33 Year
  Sex: Female
  Weight: 55.84 kg

DRUGS (3)
  1. EFFEXOR XR [Suspect]
     Indication: DEPRESSION
     Dosage: 75 MG 1X PER 1 DAY, ORAL; SEE IMAGE
     Route: 048
     Dates: start: 20030301, end: 20031001
  2. EFFEXOR XR [Suspect]
     Indication: DEPRESSION
     Dosage: 75 MG 1X PER 1 DAY, ORAL; SEE IMAGE
     Route: 048
     Dates: start: 20031001, end: 20031001
  3. EFFEXOR [Suspect]
     Indication: ANXIETY
     Dosage: ORAL
     Route: 048
     Dates: start: 20040601

REACTIONS (11)
  - ANXIETY [None]
  - CHEST PAIN [None]
  - DRUG EXPOSURE DURING PREGNANCY [None]
  - DRUG WITHDRAWAL SYNDROME [None]
  - FEELING ABNORMAL [None]
  - PALPITATIONS [None]
  - PARAESTHESIA [None]
  - PLATELET COUNT DECREASED [None]
  - SENSORY DISTURBANCE [None]
  - UTERINE DISORDER [None]
  - UTERINE HAEMORRHAGE [None]
